FAERS Safety Report 8478337-9 (Version None)
Quarter: 2012Q2

REPORT INFORMATION
  Report Type: 
  Country: None (occurrence: None)
  Receive Date: 20120629
  Receipt Date: 20120629
  Transmission Date: 20120825
  Serious: Yes (Life-Threatening, Hospitalization)
  Sender: FDA-Public Use
  Company Number: AU-PFIZER INC-2009US-29540

PATIENT
  Age: 76 Year
  Sex: Female

DRUGS (3)
  1. VERAPAMIL HCL [Suspect]
     Dosage: 480 MG, DAILY
  2. GLICLAZIDE [Suspect]
     Indication: DIABETES MELLITUS
     Dosage: 30 MG, QD
  3. FUROSEMIDE [Suspect]
     Indication: HYPERTENSION
     Dosage: 20 MG, QD

REACTIONS (2)
  - BRADYARRHYTHMIA [None]
  - CARDIOTOXICITY [None]
